FAERS Safety Report 25173299 (Version 1)
Quarter: 2025Q2

REPORT INFORMATION
  Report Type: Spontaneous
  Country: US (occurrence: US)
  Receive Date: 20250408
  Receipt Date: 20250408
  Transmission Date: 20250716
  Serious: Yes (Death, Other)
  Sender: BRISTOL MYERS SQUIBB
  Company Number: US-BRISTOL-MYERS SQUIBB COMPANY-2025-048009

PATIENT
  Age: 70 Year
  Sex: Male

DRUGS (2)
  1. POMALYST [Suspect]
     Active Substance: POMALIDOMIDE
     Indication: Plasma cell myeloma
     Dosage: QD
     Route: 048
     Dates: start: 20250117, end: 20250214
  2. TALQUETAMAB [Suspect]
     Active Substance: TALQUETAMAB
     Indication: Product used for unknown indication
     Dates: start: 202502

REACTIONS (1)
  - Death [Fatal]

NARRATIVE: CASE EVENT DATE: 20250324
